FAERS Safety Report 7256432-X (Version None)
Quarter: 2011Q1

REPORT INFORMATION
  Report Type: 
  Country: None (occurrence: None)
  Receive Date: 20110129
  Receipt Date: 20100709
  Transmission Date: 20110831
  Serious: Yes (Hospitalization)
  Sender: FDA-Public Use
  Company Number: US-ABBOTT-10P-163-0654630-00

PATIENT
  Sex: Female
  Weight: 59.02 kg

DRUGS (11)
  1. PROSCED [Concomitant]
     Indication: CYSTITIS INTERSTITIAL
     Route: 048
  2. PREVACID [Concomitant]
     Indication: GASTROOESOPHAGEAL REFLUX DISEASE
     Route: 048
  3. BYSTOLIC [Concomitant]
     Indication: HYPERTENSION
     Route: 048
  4. HUMIRA [Suspect]
     Indication: CROHN'S DISEASE
     Route: 058
     Dates: start: 20100610, end: 20100612
  5. POTASSIUM CHLORIDE [Concomitant]
     Indication: CARDIAC DISORDER
     Route: 048
  6. TOVIAZ [Concomitant]
     Indication: URINARY INCONTINENCE
     Route: 048
  7. AMLODIPINE [Concomitant]
     Indication: HYPERTENSION
     Route: 048
  8. LISINOPRIL [Concomitant]
     Indication: HYPERTENSION
     Route: 048
  9. ELMIRON [Concomitant]
     Indication: CYSTITIS INTERSTITIAL
     Route: 048
  10. MAG OX [Concomitant]
     Indication: SUPPLEMENTATION THERAPY
     Route: 048
  11. HUMIRA [Suspect]
     Route: 058
     Dates: start: 20100628

REACTIONS (3)
  - HEADACHE [None]
  - HYPERTENSION [None]
  - CYSTITIS [None]
